FAERS Safety Report 7648509-1 (Version None)
Quarter: 2011Q3

REPORT INFORMATION
  Report Type: 
  Country: None (occurrence: None)
  Receive Date: 20110801
  Receipt Date: 20110627
  Transmission Date: 20111222
  Serious: No
  Sender: FDA-Public Use
  Company Number: US-B.I. PHARMACEUTICALS,INC./RIDGEFIELD-2011-BP-15229BP

PATIENT
  Sex: Female

DRUGS (1)
  1. MIRAPEX [Suspect]
     Indication: RESTLESS LEGS SYNDROME
     Dates: start: 20050101

REACTIONS (3)
  - PATHOLOGICAL GAMBLING [None]
  - COMPULSIVE SHOPPING [None]
  - POLYDIPSIA [None]
